FAERS Safety Report 7239706-8 (Version None)
Quarter: 2011Q1

REPORT INFORMATION
  Report Type: 
  Country: None (occurrence: None)
  Receive Date: 20110122
  Receipt Date: 20101027
  Transmission Date: 20110831
  Serious: No
  Sender: FDA-Public Use
  Company Number: US-ALLERGAN-1013834US

PATIENT
  Age: 80 Year
  Sex: Female

DRUGS (3)
  1. LATISSE [Suspect]
     Indication: GROWTH OF EYELASHES
  2. GERD MEDICATION [Concomitant]
  3. METOPROLOL [Concomitant]
     Indication: HYPERTENSION

REACTIONS (2)
  - LACRIMATION INCREASED [None]
  - INCORRECT DOSE ADMINISTERED [None]
